FAERS Safety Report 16927142 (Version 2)
Quarter: 2019Q4

REPORT INFORMATION
  Report Type: Spontaneous
  Country: US (occurrence: US)
  Receive Date: 20191016
  Receipt Date: 20191018
  Transmission Date: 20200122
  Serious: Yes (Other)
  Sender: FDA-Public Use
  Company Number: US-UNITED THERAPEUTICS-UNT-2019-017089

PATIENT
  Sex: Male
  Weight: 99.77 kg

DRUGS (1)
  1. REMODULIN [Suspect]
     Active Substance: TREPROSTINIL
     Indication: PULMONARY ARTERIAL HYPERTENSION
     Dosage: 0.020 ?G/KG, CONTINUING
     Route: 058
     Dates: start: 20190305

REACTIONS (3)
  - Drug hypersensitivity [Unknown]
  - Infusion site pain [Unknown]
  - Infusion site infection [Unknown]

NARRATIVE: CASE EVENT DATE: 2019
